FAERS Safety Report 6782685-8 (Version None)
Quarter: 2010Q2

REPORT INFORMATION
  Report Type: 
  Country: None (occurrence: None)
  Receive Date: 20100621
  Receipt Date: 20100611
  Transmission Date: 20101027
  Serious: Yes (Hospitalization, Disabling, Other)
  Sender: FDA-Public Use
  Company Number: FI-AMGEN-US379504

PATIENT
  Age: 24 Year
  Sex: Female

DRUGS (2)
  1. ENBREL [Suspect]
     Indication: ANKYLOSING SPONDYLITIS
     Route: 058
     Dates: start: 20050101
  2. UNSPECIFIED CONTRACEPTIVE [Concomitant]
     Route: 048

REACTIONS (5)
  - DIZZINESS [None]
  - LABYRINTHINE FISTULA [None]
  - MOOD SWINGS [None]
  - NAUSEA [None]
  - TINNITUS [None]
